FAERS Safety Report 5599326-8 (Version None)
Quarter: 2008Q1

REPORT INFORMATION
  Report Type: 
  Country: None (occurrence: None)
  Receive Date: 20080117
  Receipt Date: 20080109
  Transmission Date: 20080703
  Serious: Yes (Death, Hospitalization, Other)
  Sender: FDA-Public Use
  Company Number: 2008US000178

PATIENT
  Age: 10 Month
  Sex: Female

DRUGS (1)
  1. AMBISOME [Suspect]
     Indication: ZYGOMYCOSIS

REACTIONS (27)
  - ACUTE RESPIRATORY DISTRESS SYNDROME [None]
  - ALANINE AMINOTRANSFERASE INCREASED [None]
  - AMMONIA INCREASED [None]
  - ANAEMIA [None]
  - ASTHENIA [None]
  - BLOOD LACTIC ACID INCREASED [None]
  - COMA [None]
  - DIARRHOEA [None]
  - DYSPLASIA [None]
  - GENERAL PHYSICAL HEALTH DETERIORATION [None]
  - HYPOKALAEMIA [None]
  - HYPOMAGNESAEMIA [None]
  - HYPOPHOSPHATAEMIA [None]
  - IRRITABILITY [None]
  - KIDNEY ENLARGEMENT [None]
  - LETHARGY [None]
  - MULTI-ORGAN FAILURE [None]
  - MUSCULOSKELETAL STIFFNESS [None]
  - NEUROLOGICAL SYMPTOM [None]
  - PEARSON'S SYNDROME [None]
  - PNEUMOCYSTIS JIROVECI PNEUMONIA [None]
  - PYELOCALIECTASIS [None]
  - PYREXIA [None]
  - RENAL IMPAIRMENT [None]
  - RENAL TUBULAR DISORDER [None]
  - THROMBOCYTOPENIA [None]
  - VOMITING [None]
